FAERS Safety Report 12213242 (Version 2)
Quarter: 2016Q2

REPORT INFORMATION
  Report Type: Spontaneous
  Country: US (occurrence: US)
  Receive Date: 20160328
  Receipt Date: 20160414
  Transmission Date: 20160815
  Serious: Yes (Death, Hospitalization, Other)
  Sender: FDA-Public Use
  Company Number: US-HOSPIRA-3215853

PATIENT
  Age: 37 Year
  Sex: Male
  Weight: 84.9 kg

DRUGS (14)
  1. NEULASTA [Concomitant]
     Active Substance: PEGFILGRASTIM
     Indication: NEUTROPENIA
     Dates: start: 20140626, end: 20140626
  2. INVESTIGATIONAL DRUG [Suspect]
     Active Substance: INVESTIGATIONAL PRODUCT
     Indication: ACUTE MYELOID LEUKAEMIA
     Route: 048
     Dates: start: 20140418
  3. CAPHOSOL [Concomitant]
     Indication: PROPHYLAXIS
     Dates: start: 20140620
  4. CAPHOSOL [Concomitant]
     Indication: MUCOSAL INFLAMMATION
     Dates: start: 20140620
  5. DEXAMETHASONE. [Concomitant]
     Active Substance: DEXAMETHASONE
     Indication: PROPHYLAXIS OF NAUSEA AND VOMITING
     Dosage: QOD
     Route: 042
     Dates: start: 20140618, end: 20140622
  6. AVELOX [Concomitant]
     Active Substance: MOXIFLOXACIN HYDROCHLORIDE
     Indication: ANTIBIOTIC PROPHYLAXIS
     Route: 048
     Dates: start: 20140515
  7. DAUNORUBICIN [Suspect]
     Active Substance: DAUNORUBICIN
     Indication: ACUTE MYELOID LEUKAEMIA
     Dosage: ONCE DAILY ON DAYS 1-3
     Route: 040
     Dates: start: 20140421, end: 20140423
  8. NOXAFIL [Concomitant]
     Active Substance: POSACONAZOLE
     Indication: ANTIFUNGAL PROPHYLAXIS
     Route: 048
     Dates: start: 20140517
  9. NEULASTA [Concomitant]
     Active Substance: PEGFILGRASTIM
     Indication: PROPHYLAXIS
     Dates: start: 20140626, end: 20140626
  10. ZOFRAN [Concomitant]
     Active Substance: ONDANSETRON HYDROCHLORIDE
     Indication: PROPHYLAXIS OF NAUSEA AND VOMITING
     Dosage: ALTERNATE DAY, QOD
     Route: 042
     Dates: start: 20140618, end: 20140622
  11. CYTARABINE. [Suspect]
     Active Substance: CYTARABINE
     Indication: ACUTE MYELOID LEUKAEMIA
     Dosage: CONSOLIDATION, 3 HOUR INFUSION Q12 HRS ON DAYS 1, 3 AND 5
     Route: 042
     Dates: start: 20140618, end: 20140623
  12. VALTREX [Concomitant]
     Active Substance: VALACYCLOVIR HYDROCHLORIDE
     Indication: ANTIVIRAL PROPHYLAXIS
     Dates: start: 20140624
  13. PRED FORTE [Concomitant]
     Active Substance: PREDNISOLONE ACETATE
     Indication: PROPHYLAXIS
     Dosage: 1 DROP EACH EYE, Q6H
     Route: 047
     Dates: start: 20140618, end: 20140624
  14. COLACE [Concomitant]
     Active Substance: DOCUSATE SODIUM
     Indication: CONSTIPATION
     Dates: start: 20140621, end: 20140621

REACTIONS (3)
  - Febrile neutropenia [Recovered/Resolved]
  - Drug ineffective [Fatal]
  - Pneumonia [Unknown]

NARRATIVE: CASE EVENT DATE: 20140630
